FAERS Safety Report 8708840 (Version 3)
Quarter: 2014Q1

REPORT INFORMATION
  Report Type: Spontaneous
  Country: US (occurrence: US)
  Receive Date: 20120806
  Receipt Date: 20140327
  Transmission Date: 20141002
  Serious: Yes (Hospitalization)
  Sender: FDA-Public Use
  Company Number: US-BAYER-2012-075745

PATIENT
  Age: 22 Year
  Sex: Female
  Weight: 59 kg

DRUGS (1)
  1. MIRENA [Suspect]
     Indication: CONTRACEPTION
     Dosage: UNK
     Route: 015
     Dates: start: 20090318, end: 20101004

REACTIONS (8)
  - Uterine perforation [None]
  - Device dislocation [None]
  - Pelvic pain [None]
  - Injury [None]
  - Emotional distress [None]
  - Quality of life decreased [None]
  - Mental disorder [None]
  - Anhedonia [None]
